FAERS Safety Report 6197262-X (Version None)
Quarter: 2009Q2

REPORT INFORMATION
  Report Type: 
  Country: None (occurrence: None)
  Receive Date: 20090521
  Receipt Date: 20090511
  Transmission Date: 20091009
  Serious: Yes (Disabling)
  Sender: FDA-Public Use
  Company Number: US-WYE-H08856609

PATIENT
  Sex: Female
  Weight: 86.26 kg

DRUGS (10)
  1. EFFEXOR XR [Suspect]
     Dosage: TITRATED UP TO A MAXIMUM UNSPECIFIED DOSE
     Route: 048
     Dates: start: 20040101, end: 20070101
  2. EFFEXOR XR [Suspect]
     Route: 048
     Dates: start: 20070101, end: 20090322
  3. EFFEXOR XR [Suspect]
     Route: 048
     Dates: start: 20090323, end: 20090331
  4. ATACAND [Concomitant]
     Dosage: 16/12.5 MG DAILY
  5. METOPROLOL [Concomitant]
  6. VYTORIN [Concomitant]
     Dosage: 10/20 MG DAILY
  7. LYRICA [Concomitant]
  8. ZEGERID [Concomitant]
  9. CYMBALTA [Suspect]
     Dates: start: 20090323, end: 20090403
  10. CELEBREX [Concomitant]

REACTIONS (8)
  - ACTIVITIES OF DAILY LIVING IMPAIRED [None]
  - ANGER [None]
  - ANXIETY [None]
  - DIZZINESS [None]
  - DRUG WITHDRAWAL SYNDROME [None]
  - EYE MOVEMENT DISORDER [None]
  - FEELING JITTERY [None]
  - INSOMNIA [None]
